FAERS Safety Report 5618680-1 (Version None)
Quarter: 2008Q1

REPORT INFORMATION
  Report Type: 
  Country: None (occurrence: None)
  Receive Date: 20080207
  Receipt Date: 20080128
  Transmission Date: 20080703
  Serious: Yes (Other)
  Sender: FDA-Public Use
  Company Number: US-JNJFOC-20060906222

PATIENT
  Sex: Female
  Weight: 136.99 kg

DRUGS (8)
  1. RISPERDAL [Suspect]
     Indication: DRUG USE FOR UNKNOWN INDICATION
  2. ZYPREXA [Suspect]
     Indication: DRUG USE FOR UNKNOWN INDICATION
  3. DEMADEX [Concomitant]
  4. EFFEXOR XR [Concomitant]
  5. NEXIUM [Concomitant]
  6. PROVENTIL [Concomitant]
  7. SINGULAIR [Concomitant]
  8. TRAZODONE HCL [Concomitant]

REACTIONS (1)
  - DIABETES MELLITUS [None]
